FAERS Safety Report 4453432-X (Version None)
Quarter: 2004Q3

REPORT INFORMATION
  Report Type: 
  Country: None (occurrence: None)
  Receive Date: 20040920
  Receipt Date: 20040903
  Transmission Date: 20050211
  Serious: Yes (Death)
  Sender: FDA-Public Use
  Company Number: US-JNJFOC-20040901917

PATIENT
  Age: 24 Year
  Sex: Male

DRUGS (1)
  1. DURAGESIC [Suspect]
     Route: 062

REACTIONS (2)
  - INTENTIONAL MISUSE [None]
  - MEDICATION ERROR [None]
